FAERS Safety Report 10170186 (Version 1)
Quarter: 2014Q2

REPORT INFORMATION
  Report Type: Spontaneous
  Country: GB (occurrence: GB)
  Receive Date: 20140513
  Receipt Date: 20140513
  Transmission Date: 20141212
  Serious: Yes (Other)
  Sender: FDA-Public Use
  Company Number: GB-ABBVIE-14P-167-1235034-00

PATIENT
  Age: 3 Year
  Sex: Male
  Weight: 18 kg

DRUGS (6)
  1. HUMIRA [Suspect]
     Indication: ARTHRITIS
     Route: 058
     Dates: start: 201401, end: 201404
  2. MONTELUKAST [Concomitant]
     Indication: ASTHMA
  3. FOLIC ACID [Concomitant]
     Indication: ARTHRITIS
     Route: 030
     Dates: start: 201307
  4. METHOTREXATE [Concomitant]
     Indication: ARTHRITIS
     Route: 058
     Dates: start: 201307
  5. NAPROXEN [Concomitant]
     Indication: ARTHRITIS
     Route: 030
  6. LANSOPRAZOLE [Concomitant]
     Indication: ARTHRITIS
     Route: 030
     Dates: start: 201307

REACTIONS (3)
  - Swelling face [Recovered/Resolved]
  - Ocular hyperaemia [Recovered/Resolved]
  - Hypersensitivity [Recovered/Resolved]
